FAERS Safety Report 8402212-9 (Version None)
Quarter: 2012Q2

REPORT INFORMATION
  Report Type: 
  Country: None (occurrence: None)
  Receive Date: 20120601
  Receipt Date: 20120529
  Transmission Date: 20120825
  Serious: No
  Sender: FDA-Public Use
  Company Number: US-PFIZER INC-2012076172

PATIENT
  Sex: Female
  Weight: 102 kg

DRUGS (5)
  1. CELEXA [Concomitant]
     Indication: DEPRESSION
     Dosage: 40 MG, DAILY
  2. CHANTIX [Suspect]
     Indication: SMOKING CESSATION THERAPY
     Dosage: 0.5 MG, 1X/DAY
     Route: 048
     Dates: start: 20120310, end: 20120301
  3. ZOCOR [Concomitant]
     Indication: BLOOD CHOLESTEROL INCREASED
     Dosage: TWO TABLETS AT NIGHT DAILY
     Route: 048
  4. XANAX [Concomitant]
     Indication: ANXIETY
     Dosage: 1 MG, AS NEEDED
  5. CHANTIX [Suspect]
     Dosage: 1 MG, 2X/DAY
     Route: 048
     Dates: start: 20120301

REACTIONS (4)
  - ANGER [None]
  - DEPRESSION [None]
  - IRRITABILITY [None]
  - DECREASED APPETITE [None]
